FAERS Safety Report 7551402-6 (Version None)
Quarter: 2011Q2

REPORT INFORMATION
  Report Type: 
  Country: None (occurrence: None)
  Receive Date: 20110616
  Receipt Date: 20110601
  Transmission Date: 20111010
  Serious: Yes (Life-Threatening, Other)
  Sender: FDA-Public Use
  Company Number: US-BAYER-201024061NA

PATIENT
  Age: 24 Year
  Sex: Female
  Weight: 108.84 kg

DRUGS (10)
  1. ATENOLOL [Concomitant]
     Indication: HYPERTENSION
     Dosage: 100 MG, UNK
     Dates: start: 20070101
  2. SUCRALFATE [Concomitant]
     Dosage: UNK UNK, CONT
  3. YASMIN [Suspect]
     Indication: MENSTRUATION IRREGULAR
  4. YAZ [Suspect]
     Indication: POLYCYSTIC OVARIES
     Dosage: UNK UNK, QD
     Route: 048
     Dates: start: 20080324, end: 20080412
  5. YAZ [Suspect]
     Indication: PREMENSTRUAL SYNDROME
  6. NEXIUM [Concomitant]
     Dosage: UNK UNK, CONT
  7. GLUCOPHAGE XR [Concomitant]
     Dosage: UNK
     Dates: start: 20080414
  8. YASMIN [Suspect]
     Indication: PREMENSTRUAL SYNDROME
  9. YASMIN [Suspect]
     Indication: POLYCYSTIC OVARIES
     Dosage: UNK UNK, QD
     Route: 048
     Dates: start: 20080419, end: 20080719
  10. YAZ [Suspect]
     Indication: MENSTRUATION IRREGULAR

REACTIONS (2)
  - BILIARY DYSKINESIA [None]
  - GALLBLADDER DISORDER [None]
